FAERS Safety Report 21706805 (Version 4)
Quarter: 2023Q1

REPORT INFORMATION
  Report Type: Report from Study
  Country: US (occurrence: US)
  Receive Date: 20221209
  Receipt Date: 20230308
  Transmission Date: 20230417
  Serious: No
  Sender: FDA-Public Use
  Company Number: US-ABBVIE-4230066

PATIENT
  Sex: Female

DRUGS (4)
  1. IMBRUVICA [Suspect]
     Active Substance: IBRUTINIB
     Indication: Chronic lymphocytic leukaemia
     Dosage: TIME INTERVAL: 0.33333333 DAYS: LAST ADMIN DATE - 2022
     Route: 048
     Dates: start: 20221111
  2. IMBRUVICA [Suspect]
     Active Substance: IBRUTINIB
     Indication: Chronic lymphocytic leukaemia
     Route: 048
     Dates: start: 20221205
  3. IMBRUVICA [Suspect]
     Active Substance: IBRUTINIB
     Indication: Chronic lymphocytic leukaemia
     Dosage: LAST ADMIN DATE - 2022
     Route: 048
     Dates: start: 202211
  4. IMBRUVICA [Suspect]
     Active Substance: IBRUTINIB
     Indication: Chronic lymphocytic leukaemia
     Route: 048

REACTIONS (10)
  - White blood cell count abnormal [Unknown]
  - Rash [Recovered/Resolved]
  - Erythema [Unknown]
  - Rash papular [Unknown]
  - White blood cell count increased [Unknown]
  - Dizziness [Recovered/Resolved]
  - Gastric pH decreased [Unknown]
  - Blood pressure increased [Unknown]
  - Pruritus [Unknown]
  - Nausea [Unknown]
